FAERS Safety Report 20658029 (Version 2)
Quarter: 2023Q1

REPORT INFORMATION
  Report Type: Spontaneous
  Country: JP (occurrence: JP)
  Receive Date: 20220331
  Receipt Date: 20230201
  Transmission Date: 20230417
  Serious: Yes (Other)
  Sender: FDA-Public Use
  Company Number: JP-ASTELLAS-2021JP016921

PATIENT
  Age: 8 Decade
  Sex: Male

DRUGS (2)
  1. XOSPATA [Suspect]
     Active Substance: GILTERITINIB
     Indication: Acute myeloid leukaemia
     Route: 048
     Dates: start: 20210816, end: 20220116
  2. XOSPATA [Suspect]
     Active Substance: GILTERITINIB
     Route: 048
     Dates: start: 20220117, end: 20220124

REACTIONS (2)
  - Acute myeloid leukaemia [Unknown]
  - Off label use [Unknown]

NARRATIVE: CASE EVENT DATE: 20210816
